FAERS Safety Report 14276201 (Version 2)
Quarter: 2018Q1

REPORT INFORMATION
  Report Type: Spontaneous
  Country: JP (occurrence: JP)
  Receive Date: 20171212
  Receipt Date: 20180108
  Transmission Date: 20180508
  Serious: Yes (Other)
  Sender: FDA-Public Use
  Company Number: JP-PFIZER INC-2017526552

PATIENT
  Age: 1 Year
  Sex: Male

DRUGS (2)
  1. GEMCITABINE HYDROCHLORIDE. [Suspect]
     Active Substance: GEMCITABINE HYDROCHLORIDE
     Indication: ACINAR CELL CARCINOMA OF PANCREAS
     Dosage: 900 MG/M2, CYCLIC (PALLIATIVE SETTING, DAY 1, 8; REPEATED FIVE TIMES)
  2. DOCETAXEL. [Suspect]
     Active Substance: DOCETAXEL
     Indication: ACINAR CELL CARCINOMA OF PANCREAS
     Dosage: 70 MG/M2, CYCLIC (PALLIATIVE SETTING, DAY 8, REPEATED FIVE TIMES)

REACTIONS (1)
  - Fluid retention [Unknown]
